FAERS Safety Report 4370045-9 (Version None)
Quarter: 2004Q2

REPORT INFORMATION
  Report Type: 
  Country: None (occurrence: None)
  Receive Date: 20040527
  Receipt Date: 20040511
  Transmission Date: 20050107
  Serious: Yes (Hospitalization)
  Sender: FDA-Public Use
  Company Number: 2003-10-2794

PATIENT
  Age: 77 Year
  Sex: Male

DRUGS (12)
  1. CLARITIN [Suspect]
     Indication: PRURITUS
     Dosage: 10 MG QD ORAL
     Route: 048
     Dates: start: 20030923, end: 20031002
  2. CALCIPARINE [Suspect]
     Dosage: 0.25 ML Q3D SUBCUTANEOUS
     Route: 058
     Dates: start: 20030922, end: 20030930
  3. RENAGEL [Suspect]
     Indication: PRURITUS
     Dosage: ORAL
     Route: 048
     Dates: start: 20030923, end: 20031002
  4. PREVISCAN TABLETS [Concomitant]
     Dosage: 25 MG QD ORAL
     Route: 048
     Dates: start: 20030901, end: 20030922
  5. OMEPRAZOLE [Suspect]
     Dosage: 20 MG QD ORAL
     Route: 048
     Dates: start: 20030901, end: 20031002
  6. TARDYFERON TABLETS [Suspect]
     Dosage: 80 MG QD ORAL
     Dates: start: 20030901, end: 20030929
  7. FER-IN-SOL [Concomitant]
  8. RECORMON (EPOETIN BETA) [Concomitant]
  9. ALLOPURINOL [Concomitant]
  10. TRANDOLAPRIL [Concomitant]
  11. LASILIX [Concomitant]
  12. DIGOXIN [Concomitant]

REACTIONS (8)
  - ALANINE AMINOTRANSFERASE INCREASED [None]
  - ASPARTATE AMINOTRANSFERASE INCREASED [None]
  - BLOOD ALKALINE PHOSPHATASE INCREASED [None]
  - CHOLESTASIS [None]
  - GAMMA-GLUTAMYLTRANSFERASE INCREASED [None]
  - HEPATIC FIBROSIS [None]
  - HYPERPHOSPHATASAEMIA [None]
  - IRON DEFICIENCY ANAEMIA [None]
